FAERS Safety Report 5369320-0 (Version None)
Quarter: 2007Q2

REPORT INFORMATION
  Report Type: 
  Country: None (occurrence: None)
  Receive Date: 20070625
  Receipt Date: 20070312
  Transmission Date: 20071010
  Serious: No
  Sender: FDA-Public Use
  Company Number: US-ASTRAZENECA-2007UW04722

PATIENT
  Age: 66 Year
  Sex: Female
  Weight: 68 kg

DRUGS (9)
  1. CRESTOR [Suspect]
     Indication: HYPERCHOLESTEROLAEMIA
     Route: 048
     Dates: start: 20070306
  2. NORVASC [Concomitant]
  3. ATENOLOL [Concomitant]
  4. CAPTOPRIL [Concomitant]
  5. SPIRONOLACTONE [Concomitant]
  6. ALPRAZOLAM [Concomitant]
  7. ACIPHEX [Concomitant]
  8. COENZYME Q10 [Concomitant]
  9. HERBALS [Concomitant]

REACTIONS (2)
  - MOUTH ULCERATION [None]
  - MYALGIA [None]
